FAERS Safety Report 6813486-X (Version None)
Quarter: 2010Q3

REPORT INFORMATION
  Report Type: 
  Country: None (occurrence: None)
  Receive Date: 20100701
  Receipt Date: 20100621
  Transmission Date: 20110219
  Serious: Yes (Congenital Anomaly, Other)
  Sender: FDA-Public Use
  Company Number: GB-MYLANLABS-2010S1011324

PATIENT
  Age: 4 Month

DRUGS (2)
  1. VALPROATE SODIUM [Suspect]
     Route: 064
  2. LAMOTRIGINE [Suspect]

REACTIONS (4)
  - CRANIOSYNOSTOSIS [None]
  - DRUG EXPOSURE DURING PREGNANCY [None]
  - FOETAL ANTICONVULSANT SYNDROME [None]
  - SPEECH DISORDER DEVELOPMENTAL [None]
